FAERS Safety Report 6947483 (Version 2)
Quarter: 2019Q1

REPORT INFORMATION
  Report Type: Spontaneous
  Country: GB (occurrence: GB)
  Receive Date: 20090320
  Receipt Date: 20190305
  Transmission Date: 20190418
  Serious: Yes (Hospitalization)
  Sender: FDA-Public Use
  Company Number: GB-PFIZER INC-2009183228

PATIENT
  Age: 48 Year
  Sex: Male
  Weight: 72 kg

DRUGS (2)
  1. CHAMPIX [Suspect]
     Active Substance: VARENICLINE TARTRATE
     Indication: SMOKING CESSATION THERAPY
     Dosage: 1 MG, 2X/DAY
     Route: 048
     Dates: start: 20081106, end: 20090131
  2. OMEPRAZOLE. [Concomitant]
     Active Substance: OMEPRAZOLE
     Dosage: UNK

REACTIONS (3)
  - Visual acuity reduced [Not Recovered/Not Resolved]
  - Headache [Recovered/Resolved]
  - Chorioretinopathy [Recovered/Resolved with Sequelae]

NARRATIVE: CASE EVENT DATE: 2009
